FAERS Safety Report 8540983-1 (Version None)
Quarter: 2012Q3

REPORT INFORMATION
  Report Type: 
  Country: None (occurrence: None)
  Receive Date: 20120726
  Receipt Date: 20110812
  Transmission Date: 20120928
  Serious: No
  Sender: FDA-Public Use
  Company Number: US-ASTRAZENECA-2011SE48780

PATIENT
  Age: 47 Year
  Sex: Female

DRUGS (4)
  1. ZYLOPRIM [Concomitant]
  2. SEROQUEL [Suspect]
     Indication: ANXIETY
     Route: 048
     Dates: start: 20070101
  3. SEROQUEL [Suspect]
     Indication: BIPOLAR DISORDER
     Route: 048
     Dates: start: 20070101
  4. KLONOPIN [Concomitant]

REACTIONS (2)
  - DEPRESSION [None]
  - DRUG DOSE OMISSION [None]
